FAERS Safety Report 4749616-3 (Version None)
Quarter: 2005Q3

REPORT INFORMATION
  Report Type: 
  Country: None (occurrence: None)
  Receive Date: 20050819
  Receipt Date: 20050819
  Transmission Date: 20060218
  Serious: Yes (Life-Threatening)
  Sender: FDA-Public Use
  Company Number: None

PATIENT
  Age: 74 Year
  Sex: Female

DRUGS (1)
  1. PERSANTINE [Suspect]
     Indication: CARDIAC STRESS TEST
     Dosage: ONE TIME   IV
     Route: 042
     Dates: start: 20050505, end: 20050505

REACTIONS (2)
  - BRONCHOSPASM [None]
  - CHEST DISCOMFORT [None]
